FAERS Safety Report 7422371-4 (Version None)
Quarter: 2011Q2

REPORT INFORMATION
  Report Type: 
  Country: None (occurrence: None)
  Receive Date: 20110419
  Receipt Date: 20110407
  Transmission Date: 20111010
  Serious: No
  Sender: FDA-Public Use
  Company Number: US-BIOGENIDEC-2011BI013379

PATIENT
  Sex: Female

DRUGS (4)
  1. TYSABRI [Suspect]
     Indication: MULTIPLE SCLEROSIS
     Route: 042
     Dates: start: 20101129
  2. OXYCODONE [Concomitant]
     Indication: INTERVERTEBRAL DISC DEGENERATION
  3. PROZAC [Concomitant]
     Indication: DEPRESSION
  4. TYSABRI [Suspect]
     Route: 042
     Dates: start: 20090421, end: 20100514

REACTIONS (8)
  - DEPRESSION [None]
  - ANXIETY [None]
  - MOOD ALTERED [None]
  - MUSCLE RUPTURE [None]
  - GASTRIC DISORDER [None]
  - FATIGUE [None]
  - WHIPLASH INJURY [None]
  - ARTHRALGIA [None]
